FAERS Safety Report 18555569 (Version 1)
Quarter: 2020Q4

REPORT INFORMATION
  Report Type: Spontaneous
  Country: MA (occurrence: MA)
  Receive Date: 20201127
  Receipt Date: 20201127
  Transmission Date: 20210114
  Serious: Yes (Other)
  Sender: FDA-Public Use
  Company Number: MA-SA-2020SA342806

PATIENT

DRUGS (1)
  1. XYZAL [Suspect]
     Active Substance: LEVOCETIRIZINE DIHYDROCHLORIDE
     Indication: PRODUCT USED FOR UNKNOWN INDICATION
     Dosage: 5 MG
     Route: 065

REACTIONS (3)
  - Seizure [Recovered/Resolved]
  - Loss of consciousness [Recovered/Resolved]
  - Nervous system disorder [Recovered/Resolved]
